FAERS Safety Report 14639106 (Version 6)
Quarter: 2018Q2

REPORT INFORMATION
  Report Type: Report from Study
  Country: None (occurrence: US)
  Receive Date: 20180315
  Receipt Date: 20180506
  Transmission Date: 20180711
  Serious: Yes (Hospitalization)
  Sender: FDA-Public Use
  Company Number: US-ABBVIE-18K-163-2285363-00

PATIENT
  Age: 78 Year
  Sex: Female

DRUGS (2)
  1. HUMIRA [Suspect]
     Active Substance: ADALIMUMAB
     Indication: RHEUMATOID ARTHRITIS
     Route: 058
     Dates: start: 20170222, end: 201802
  2. HUMIRA [Suspect]
     Active Substance: ADALIMUMAB
     Route: 058
     Dates: start: 201803, end: 2018

REACTIONS (19)
  - Hypertension [Not Recovered/Not Resolved]
  - Dizziness [Unknown]
  - Photopsia [Unknown]
  - Asthenia [Not Recovered/Not Resolved]
  - Dialysis related complication [Recovered/Resolved]
  - Dehydration [Recovered/Resolved]
  - Device issue [Unknown]
  - Dialysis related complication [Not Recovered/Not Resolved]
  - Renal impairment [Not Recovered/Not Resolved]
  - Heart rate decreased [Unknown]
  - Back pain [Not Recovered/Not Resolved]
  - Chest pain [Not Recovered/Not Resolved]
  - Somnolence [Unknown]
  - Fatigue [Recovering/Resolving]
  - Procedural complication [Unknown]
  - Muscle spasms [Unknown]
  - Dehydration [Not Recovered/Not Resolved]
  - Palpitations [Unknown]
  - Arthralgia [Unknown]

NARRATIVE: CASE EVENT DATE: 201705
